FAERS Safety Report 24784815 (Version 1)
Quarter: 2024Q4

REPORT INFORMATION
  Report Type: Spontaneous
  Country: FR (occurrence: FR)
  Receive Date: 20241228
  Receipt Date: 20241228
  Transmission Date: 20250115
  Serious: Yes (Other)
  Sender: AUROBINDO
  Company Number: FR-PFM-2024-05103

PATIENT
  Age: 76 Year
  Sex: Female

DRUGS (5)
  1. PROPRANOLOL [Suspect]
     Active Substance: PROPRANOLOL HYDROCHLORIDE
     Indication: Product used for unknown indication
     Dosage: 40 MILLIGRAM, DAILY (40 MG PER DAY)
     Route: 065
     Dates: start: 202212
  2. ESOMEPRAZOLE [Suspect]
     Active Substance: ESOMEPRAZOLE
     Indication: Dyspepsia
     Dosage: 20 MILLIGRAM, DAILY (20 MG PER DAY)
     Route: 065
     Dates: start: 202212
  3. LEVACETYLLEUCINE [Suspect]
     Active Substance: LEVACETYLLEUCINE
     Indication: Tinnitus
     Dosage: 1 DOSAGE FORM, ONCE A DAY (1 DF, TID (3/DAY) (MORNING, NOON AND EVENING)) (TANGANIL GE)
     Route: 048
     Dates: start: 20240913, end: 20240913
  4. LEVACETYLLEUCINE [Suspect]
     Active Substance: LEVACETYLLEUCINE
     Indication: Tinnitus
     Dosage: UNK
     Route: 065
     Dates: start: 20240919
  5. LORAZEPAM [Suspect]
     Active Substance: LORAZEPAM
     Indication: Insomnia
     Dosage: 1 MILLIGRAM, DAILY (1 MG PER DAY)
     Route: 065
     Dates: start: 202301

REACTIONS (6)
  - Respiratory depression [Recovered/Resolved]
  - Chest discomfort [Recovered/Resolved]
  - Hypersensitivity [Recovered/Resolved]
  - Product use in unapproved indication [Unknown]
  - Inappropriate schedule of product administration [Unknown]
  - Off label use [Unknown]

NARRATIVE: CASE EVENT DATE: 20240913
